FAERS Safety Report 15935614 (Version 1)
Quarter: 2019Q1

REPORT INFORMATION
  Report Type: Report from Study
  Country: US (occurrence: US)
  Receive Date: 20190208
  Receipt Date: 20190208
  Transmission Date: 20190417
  Serious: No
  Sender: FDA-Public Use
  Company Number: PHEH2019US005492

PATIENT
  Sex: Female
  Weight: 67.59 kg

DRUGS (1)
  1. COSENTYX [Suspect]
     Active Substance: SECUKINUMAB
     Indication: PSORIASIS
     Dosage: 300 MG, QMO
     Route: 058
     Dates: start: 201901

REACTIONS (9)
  - Influenza like illness [Unknown]
  - Psoriasis [Unknown]
  - Diarrhoea [Unknown]
  - Decreased immune responsiveness [Unknown]
  - Upper respiratory tract infection [Unknown]
  - Asthenia [Unknown]
  - Skin lesion [Unknown]
  - Pain [Unknown]
  - Sinusitis [Unknown]
